FAERS Safety Report 17259393 (Version 4)
Quarter: 2020Q3

REPORT INFORMATION
  Report Type: Report from Study
  Country: US (occurrence: US)
  Receive Date: 20200110
  Receipt Date: 20200813
  Transmission Date: 20201102
  Serious: Yes (Hospitalization)
  Sender: FDA-Public Use
  Company Number: US-ACTELION-A-NJ2020-200385

PATIENT
  Sex: Female

DRUGS (3)
  1. UPTRAVI [Suspect]
     Active Substance: SELEXIPAG
     Dosage: 1200 MCG, BID
     Route: 048
     Dates: start: 20200330
  2. UPTRAVI [Suspect]
     Active Substance: SELEXIPAG
     Dosage: 400 MCG, BID
     Route: 048
     Dates: start: 20191218
  3. UPTRAVI [Suspect]
     Active Substance: SELEXIPAG
     Indication: PULMONARY ARTERIAL HYPERTENSION
     Dosage: 1400 MCG, BID
     Route: 048

REACTIONS (15)
  - Headache [Unknown]
  - Diarrhoea [Unknown]
  - Abdominal pain [Unknown]
  - Influenza [Unknown]
  - Gastrooesophageal reflux disease [Unknown]
  - Pain [Unknown]
  - Arthralgia [Unknown]
  - Nasal congestion [Not Recovered/Not Resolved]
  - Insomnia [Unknown]
  - Cough [Unknown]
  - Neck pain [Unknown]
  - Cardiac failure [Unknown]
  - Migraine [Unknown]
  - Myalgia [Unknown]
  - Pain in extremity [Unknown]
